FAERS Safety Report 9134774 (Version 1)
Quarter: 2013Q1

REPORT INFORMATION
  Report Type: Spontaneous
  Country: US (occurrence: US)
  Receive Date: 20130304
  Receipt Date: 20130304
  Transmission Date: 20140127
  Serious: No
  Sender: FDA-Public Use
  Company Number: US-PFIZER INC-2013072964

PATIENT
  Sex: Male

DRUGS (1)
  1. VFEND [Suspect]
     Indication: LUNG DISORDER
     Dosage: UNK
     Dates: start: 201210

REACTIONS (2)
  - Ligament sprain [Unknown]
  - Back pain [Unknown]
